FAERS Safety Report 4822616-0 (Version None)
Quarter: 2005Q4

REPORT INFORMATION
  Report Type: 
  Country: None (occurrence: None)
  Receive Date: 20051104
  Receipt Date: 20051028
  Transmission Date: 20060501
  Serious: Yes (Death)
  Sender: FDA-Public Use
  Company Number: HQWYE056601JUN05

PATIENT
  Age: 59 Year
  Sex: Male

DRUGS (1)
  1. EFFEXOR [Suspect]

REACTIONS (12)
  - AORTIC ARTERIOSCLEROSIS [None]
  - ARTERIOSCLEROSIS CORONARY ARTERY [None]
  - BENIGN PROSTATIC HYPERPLASIA [None]
  - BLADDER TRABECULATION [None]
  - CARDIOMEGALY [None]
  - CHOLELITHIASIS [None]
  - COMPLETED SUICIDE [None]
  - CORONARY ARTERY STENOSIS [None]
  - GUN SHOT WOUND [None]
  - NEOPLASM PROSTATE [None]
  - SKULL FRACTURE [None]
  - TRAUMATIC BRAIN INJURY [None]
